FAERS Safety Report 12855824 (Version 1)
Quarter: 2016Q4

REPORT INFORMATION
  Report Type: Spontaneous
  Country: US (occurrence: US)
  Receive Date: 20161018
  Receipt Date: 20161018
  Transmission Date: 20170207
  Serious: No
  Sender: FDA-Public Use
  Company Number: GXBR2014US001248

PATIENT
  Age: 19 Year
  Sex: Female
  Weight: 76.19 kg

DRUGS (1)
  1. ENOXAPARIN SODIUM. [Suspect]
     Active Substance: ENOXAPARIN SODIUM
     Indication: THROMBOSIS
     Dosage: 70 MG, BID

REACTIONS (1)
  - Maternal exposure during pregnancy [Not Recovered/Not Resolved]
